APPROVED DRUG PRODUCT: NORLIQVA
Active Ingredient: AMLODIPINE BESYLATE
Strength: EQ 1MG BASE/ML
Dosage Form/Route: SOLUTION;ORAL
Application: N214439 | Product #001
Applicant: CMP DEVELOPMENT LLC
Approved: Feb 24, 2022 | RLD: Yes | RS: Yes | Type: RX

PATENTS:
Patent 12226528 | Expires: Feb 24, 2041
Patent 12226528 | Expires: Feb 24, 2041
Patent 12226528 | Expires: Feb 24, 2041
Patent 11458095 | Expires: Feb 24, 2041
Patent 11458095 | Expires: Feb 24, 2041
Patent 11458095 | Expires: Feb 24, 2041
Patent 12005141 | Expires: Feb 24, 2041
Patent 12440441 | Expires: Feb 24, 2041
Patent 12440441 | Expires: Feb 24, 2041
Patent 12440441 | Expires: Feb 24, 2041
Patent 12005141 | Expires: Feb 24, 2041
Patent 12005141 | Expires: Feb 24, 2041
Patent 11723866 | Expires: Feb 24, 2041
Patent 11723866 | Expires: Feb 24, 2041
Patent 11723866 | Expires: Feb 24, 2041
Patent 11253474 | Expires: Feb 24, 2041
Patent 11253474 | Expires: Feb 24, 2041
Patent 11253474 | Expires: Feb 24, 2041